FAERS Safety Report 4708963-1 (Version None)
Quarter: 2005Q3

REPORT INFORMATION
  Report Type: 
  Country: None (occurrence: None)
  Receive Date: 20050705
  Receipt Date: 20050623
  Transmission Date: 20060218
  Serious: Yes (Disabling)
  Sender: FDA-Public Use
  Company Number: 2005092992

PATIENT
  Age: 57 Year
  Sex: Female
  Weight: 98 kg

DRUGS (4)
  1. SULFASALAZINE [Suspect]
     Indication: ARTHRITIS
     Dosage: 1500 MG (500 MG, 3 IN 1 D), ORAL
     Route: 048
     Dates: start: 20050406, end: 20050519
  2. IBUPROFEN [Concomitant]
  3. CLONIDINE [Concomitant]
  4. AMITRIPTYLINE HCL [Suspect]

REACTIONS (4)
  - CHEST X-RAY ABNORMAL [None]
  - DYSPNOEA [None]
  - PULMONARY FIBROSIS [None]
  - WHEEZING [None]
